FAERS Safety Report 16429818 (Version 1)
Quarter: 2019Q2

REPORT INFORMATION
  Report Type: Spontaneous
  Country: GB (occurrence: GB)
  Receive Date: 20190614
  Receipt Date: 20190614
  Transmission Date: 20190711
  Serious: Yes (Hospitalization)
  Sender: FDA-Public Use
  Company Number: GB-009507513-2007-169134-NL

PATIENT
  Age: 31 Year
  Sex: Female
  Weight: 63 kg

DRUGS (4)
  1. MENOTROPINS [Suspect]
     Active Substance: MENOTROPINS
     Indication: IN VITRO FERTILISATION
     Dosage: 225 INTERNATIONAL UNIT
     Route: 058
     Dates: start: 20071027, end: 20071105
  2. PREGNYL [Suspect]
     Active Substance: CHORIOGONADOTROPIN ALFA
     Indication: IN VITRO FERTILISATION
     Dosage: 5000 INTERNATIONAL UNIT, ONCE
     Route: 058
     Dates: start: 20071107
  3. FOLIC ACID. [Concomitant]
     Active Substance: FOLIC ACID
     Indication: PREGNANCY
     Dosage: 400 MICROGRAM, UNK
     Route: 048
  4. BUSERELIN [Concomitant]
     Active Substance: BUSERELIN
     Indication: IN VITRO FERTILISATION
     Dosage: 0.5 MG, UNK
     Route: 058

REACTIONS (3)
  - Dyspnoea [Recovering/Resolving]
  - Abdominal distension [Recovering/Resolving]
  - Ovarian hyperstimulation syndrome [Recovering/Resolving]

NARRATIVE: CASE EVENT DATE: 20071113
